FAERS Safety Report 7692952-1 (Version None)
Quarter: 2011Q3

REPORT INFORMATION
  Report Type: 
  Country: None (occurrence: None)
  Receive Date: 20110819
  Receipt Date: 20110811
  Transmission Date: 20111222
  Serious: Yes (Hospitalization)
  Sender: FDA-Public Use
  Company Number: US-ASTELLAS-2011US004242

PATIENT

DRUGS (11)
  1. PROGRAF [Suspect]
     Dosage: 0.5 MG, BID
     Route: 048
  2. LEVEMIR [Concomitant]
     Indication: DIABETES MELLITUS
     Dosage: 8-10 U, UID/QD
     Route: 065
     Dates: start: 20060101
  3. PROGRAF [Suspect]
     Indication: LIVER TRANSPLANT
     Dosage: 2 MG, BID
     Route: 048
     Dates: start: 19960516
  4. LISINOPRIL [Concomitant]
     Indication: PRODUCT USED FOR UNKNOWN INDICATION
     Dosage: 20 MG, UID/QD
     Route: 048
     Dates: start: 20010101
  5. HUMALOG [Concomitant]
     Indication: DIABETES MELLITUS
     Dosage: 3-7 U, TID
     Route: 065
     Dates: start: 20060101
  6. SYNTHROID [Concomitant]
     Indication: THYROID DISORDER
     Dosage: 0.75 MG, UID/QD
     Route: 048
     Dates: start: 20060101
  7. PRAVASTATIN [Concomitant]
     Indication: BLOOD CHOLESTEROL
     Dosage: 20 MG, UID/QD
     Route: 048
     Dates: start: 20070101
  8. VITAMIN D [Concomitant]
     Indication: VITAMIN D DEFICIENCY
     Dosage: 50000 U, WEEKLY
     Route: 048
     Dates: start: 20100101
  9. PLAVIX [Concomitant]
     Indication: ANTICOAGULANT THERAPY
     Dosage: 75 MG, UID/QD
     Route: 048
     Dates: start: 20060101
  10. ACIDOPHILUS [Concomitant]
     Indication: GASTROINTESTINAL DISORDER
     Dosage: UNK
     Route: 048
     Dates: start: 20100701
  11. NORVASC [Concomitant]
     Indication: BLOOD PRESSURE
     Dosage: 5 MG, BID
     Route: 048
     Dates: start: 20070101

REACTIONS (1)
  - BILIARY CIRRHOSIS PRIMARY [None]
